FAERS Safety Report 4557091-7 (Version None)
Quarter: 2005Q1

REPORT INFORMATION
  Report Type: 
  Country: None (occurrence: None)
  Receive Date: 20050120
  Receipt Date: 20041208
  Transmission Date: 20050727
  Serious: Yes (Disabling)
  Sender: FDA-Public Use
  Company Number: DE-GLAXOSMITHKLINE-D0045436A

PATIENT
  Age: 33 Year
  Sex: Female
  Weight: 66 kg

DRUGS (2)
  1. MALARONE [Suspect]
     Indication: PROPHYLAXIS
     Dosage: 1TAB PER DAY
     Route: 048
     Dates: start: 20041118, end: 20041128
  2. LARIAM [Concomitant]
     Indication: PROPHYLAXIS
     Route: 065
     Dates: start: 20041128

REACTIONS (2)
  - EXANTHEM [None]
  - URTICARIA THERMAL [None]
